FAERS Safety Report 6887322-X (Version None)
Quarter: 2010Q3

REPORT INFORMATION
  Report Type: 
  Country: None (occurrence: None)
  Receive Date: 20100730
  Receipt Date: 20090723
  Transmission Date: 20110219
  Serious: No
  Sender: FDA-Public Use
  Company Number: A0799745A

PATIENT
  Sex: Male

DRUGS (1)
  1. SUMATRIPTAN SUCCINATE [Suspect]
     Dosage: 100MG AS REQUIRED
     Route: 048

REACTIONS (1)
  - DRUG INEFFECTIVE [None]
